FAERS Safety Report 14526115 (Version 8)
Quarter: 2022Q1

REPORT INFORMATION
  Report Type: Spontaneous
  Country: FR (occurrence: FR)
  Receive Date: 20180213
  Receipt Date: 20220331
  Transmission Date: 20220423
  Serious: Yes (Hospitalization, Other)
  Sender: FDA-Public Use
  Company Number: FR-AUROBINDO-AUR-APL-2018-006787

PATIENT
  Age: 33 Year
  Sex: Male
  Weight: 61 kg

DRUGS (32)
  1. ALBUTEROL [Suspect]
     Active Substance: ALBUTEROL
     Indication: Respiratory disorder
     Dosage: UNK
     Route: 055
  2. IPRATROPIUM [Suspect]
     Active Substance: IPRATROPIUM
     Indication: Respiratory disorder
     Dosage: TIME TO ONSET: 4 DAY(S) ()
     Route: 055
  3. IPRATROPIUM [Suspect]
     Active Substance: IPRATROPIUM
     Dosage: TIME TO ONSET: 4 DAY(S)
     Route: 065
  4. POTASSIUM CHLORIDE [Suspect]
     Active Substance: POTASSIUM CHLORIDE
     Indication: Product used for unknown indication
     Dosage: 1 DOSAGE FORM
     Route: 048
  5. POTASSIUM CHLORIDE [Suspect]
     Active Substance: POTASSIUM CHLORIDE
     Dosage: 1 DOSAGE FORM, ONCE A DAY
     Route: 048
  6. SPIRAMYCIN [Suspect]
     Active Substance: SPIRAMYCIN
     Indication: Pleurisy
     Dosage: 1.5 INTERNATIONAL UNIT, ONCE A DAY (1.5 IU, UNK)
     Route: 042
  7. SPIRAMYCIN [Suspect]
     Active Substance: SPIRAMYCIN
     Dosage: 4.5 UNK
     Route: 065
  8. TEMODAL [Suspect]
     Active Substance: TEMOZOLOMIDE
     Indication: Astrocytoma
     Dosage: 140 MILLIGRAM, ONCE A DAY
     Route: 048
  9. TEMODAL [Suspect]
     Active Substance: TEMOZOLOMIDE
     Dosage: 140 MILLIGRAM, ONCE A DAY
     Route: 048
  10. TEMODAL [Suspect]
     Active Substance: TEMOZOLOMIDE
     Dosage: 140 MILLIGRAM, ONCE A DAY
     Route: 048
  11. TEMODAL [Suspect]
     Active Substance: TEMOZOLOMIDE
     Dosage: 140 MILLIGRAM, ONCE A DAY
     Route: 048
  12. TEMODAL [Suspect]
     Active Substance: TEMOZOLOMIDE
     Dosage: 140 MILLIGRAM, ONCE A DAY
     Route: 048
  13. PREDNISOLONE [Suspect]
     Active Substance: PREDNISOLONE
     Indication: Respiratory disorder
     Dosage: 40 MILLIGRAM, DAILY
     Route: 048
  14. ATROVENT [Suspect]
     Active Substance: IPRATROPIUM BROMIDE
     Indication: Respiratory disorder
     Dosage: TIME TO ONSET: 4 DAY(S)
     Route: 055
  15. ATROVENT [Suspect]
     Active Substance: IPRATROPIUM BROMIDE
     Dosage: TIME TO ONSET: 4 DAY(S) ()
     Route: 055
  16. AUGMENTIN [Concomitant]
     Active Substance: AMOXICILLIN\CLAVULANATE POTASSIUM
     Indication: Product used for unknown indication
     Dosage: 3 DOSAGE FORM
     Route: 065
  17. CARMUSTINE [Concomitant]
     Active Substance: CARMUSTINE
     Indication: Product used for unknown indication
     Dosage: ()
     Route: 065
  18. ESOMEPRAZOLE [Concomitant]
     Active Substance: ESOMEPRAZOLE
     Indication: Product used for unknown indication
     Dosage: UNK
     Route: 048
  19. MEDROL [Concomitant]
     Active Substance: METHYLPREDNISOLONE
     Indication: Product used for unknown indication
     Dosage: UNK
     Route: 065
  20. KEPPRA [Concomitant]
     Active Substance: LEVETIRACETAM
     Indication: Product used for unknown indication
     Dosage: 1000 MILLIGRAM, ONCE A DAY
     Route: 048
  21. KEPPRA [Concomitant]
     Active Substance: LEVETIRACETAM
     Dosage: 2000 MILLIGRAM
     Route: 048
  22. Lamaline [Concomitant]
     Indication: Product used for unknown indication
     Dosage: UNK (2 UG/LITRE) ()
     Route: 065
  23. Lamaline [Concomitant]
     Dosage: 2 DOSAGE FORM, DAILY
     Route: 065
  24. LYRICA [Concomitant]
     Active Substance: PREGABALIN
     Indication: Product used for unknown indication
     Dosage: 100 MILLIGRAM
     Route: 048
  25. LEVETIRACETAM [Concomitant]
     Active Substance: LEVETIRACETAM
     Indication: Product used for unknown indication
     Dosage: UNK
     Route: 065
  26. OFLOXACIN [Concomitant]
     Active Substance: OFLOXACIN
     Indication: Product used for unknown indication
     Dosage: 1 DOSAGE FORM, ONCE A DAY (1 ?G/L, QD)
     Route: 031
  27. OFLOXACIN [Concomitant]
     Active Substance: OFLOXACIN
     Dosage: 2 DOSAGE FORM, ONCE A DAY
     Route: 031
  28. PROCARBAZINE [Concomitant]
     Active Substance: PROCARBAZINE
     Indication: Product used for unknown indication
     Dosage: ()
     Route: 065
  29. PROCARBAZINE [Concomitant]
     Active Substance: PROCARBAZINE
     Dosage: ()
     Route: 065
  30. CLOBAZAM [Concomitant]
     Active Substance: CLOBAZAM
     Indication: Product used for unknown indication
     Dosage: 1 DOSAGE FORM
     Route: 048
  31. VINCRISTINE [Concomitant]
     Active Substance: VINCRISTINE
     Indication: Product used for unknown indication
     Dosage: ()
     Route: 065
  32. ESLICARBAZEPINE ACETATE [Concomitant]
     Active Substance: ESLICARBAZEPINE ACETATE
     Indication: Product used for unknown indication
     Dosage: 1.5 DOSAGE FORM
     Route: 048

REACTIONS (2)
  - Cholestasis [Not Recovered/Not Resolved]
  - Hepatic cytolysis [Recovered/Resolved]

NARRATIVE: CASE EVENT DATE: 20170201
